FAERS Safety Report 10704051 (Version 2)
Quarter: 2015Q1

REPORT INFORMATION
  Report Type: Spontaneous
  Country: US (occurrence: US)
  Receive Date: 20150112
  Receipt Date: 20150112
  Transmission Date: 20150721
  Serious: Yes (Death, Hospitalization)
  Sender: FDA-Public Use
  Company Number: US-SA-FABR-1000385

PATIENT
  Age: 68 Year
  Sex: Female
  Weight: 80.73 kg

DRUGS (11)
  1. ESTRING [Concomitant]
     Active Substance: ESTRADIOL
  2. FABRAZYME [Suspect]
     Active Substance: AGALSIDASE BETA
     Indication: FABRY^S DISEASE
     Dosage: 78 MG, Q2W
     Route: 041
     Dates: end: 20141217
  3. NEURONTIN [Concomitant]
     Active Substance: GABAPENTIN
  4. COUMADIN [Concomitant]
     Active Substance: WARFARIN SODIUM
  5. COZAAR [Concomitant]
     Active Substance: LOSARTAN POTASSIUM
  6. TOLTERODINE L-TARTRATE [Concomitant]
  7. NORTRIPTYLINE HYDROCHLORIDE. [Concomitant]
     Active Substance: NORTRIPTYLINE HYDROCHLORIDE
  8. FABRAZYME [Suspect]
     Active Substance: AGALSIDASE BETA
     Indication: FABRY^S DISEASE
     Dosage: 78 MG, Q2W
     Route: 041
     Dates: start: 20040921
  9. TYLENOL [Concomitant]
     Active Substance: ACETAMINOPHEN
     Indication: PREMEDICATION
     Dosage: UNK
     Dates: end: 20141224
  10. CLARITIN [Concomitant]
     Active Substance: LORATADINE
     Indication: PREMEDICATION
     Dosage: UNK
     Dates: end: 20141224
  11. FABRAZYME [Suspect]
     Active Substance: AGALSIDASE BETA
     Indication: FABRY^S DISEASE
     Dosage: 78 MG, Q2W
     Route: 041
     Dates: end: 20141217

REACTIONS (5)
  - Cerebrovascular accident [Fatal]
  - Chest pain [Unknown]
  - Pain in extremity [Unknown]
  - Swelling [Unknown]
  - Fatigue [Unknown]

NARRATIVE: CASE EVENT DATE: 20080806
